FAERS Safety Report 9634819 (Version 1)
Quarter: 2013Q4

REPORT INFORMATION
  Report Type: Spontaneous
  Country: US (occurrence: US)
  Receive Date: 20131021
  Receipt Date: 20131021
  Transmission Date: 20140711
  Serious: No
  Sender: FDA-Public Use
  Company Number: US-BAYER-2013-127205

PATIENT
  Age: 76 Year
  Sex: Female
  Weight: 70 kg

DRUGS (6)
  1. ALEVE CAPLET [Suspect]
     Indication: ARTHRITIS
     Dosage: 1 DF, BID
     Route: 048
     Dates: start: 2013
  2. ALEVE CAPLET [Suspect]
     Indication: SWELLING
  3. ALEVE CAPLET [Suspect]
     Indication: PAIN PROPHYLAXIS
  4. LISINOPRIL [Concomitant]
  5. LEVOTHYROXINE [Concomitant]
  6. GLUCOSAMINE [Concomitant]

REACTIONS (3)
  - Off label use [None]
  - Off label use [None]
  - Off label use [None]
